FAERS Safety Report 5378287-0 (Version None)
Quarter: 2007Q2

REPORT INFORMATION
  Report Type: 
  Country: None (occurrence: None)
  Receive Date: 20070620
  Receipt Date: 20070612
  Transmission Date: 20071010
  Serious: Yes (Other)
  Sender: FDA-Public Use
  Company Number: AECAN200700146

PATIENT
  Sex: Female

DRUGS (2)
  1. IMMUNE GLOBULIN (HUMAN) [Suspect]
     Dosage: 6 MG; 1X; IV
     Route: 042
     Dates: start: 20070605, end: 20070605
  2. IMMUNE GLOBULIN (HUMAN) [Suspect]

REACTIONS (5)
  - CHEST PAIN [None]
  - DYSPNOEA [None]
  - HYPERTENSION [None]
  - NAUSEA [None]
  - TACHYCARDIA [None]
